FAERS Safety Report 6539803-6 (Version None)
Quarter: 2010Q1

REPORT INFORMATION
  Report Type: 
  Country: None (occurrence: None)
  Receive Date: 20100115
  Receipt Date: 20100108
  Transmission Date: 20100710
  Serious: Yes (Other)
  Sender: FDA-Public Use
  Company Number: GB-PFIZER INC-2009308217

PATIENT
  Age: 71 Year
  Sex: Male
  Weight: 81 kg

DRUGS (2)
  1. ISTIN [Suspect]
     Dosage: 05 MG, 1X/DAY
     Route: 048
     Dates: start: 20091022, end: 20091109
  2. CLOPIDOGREL [Concomitant]
     Indication: POLYCYTHAEMIA VERA
     Dosage: 75 MG, 1X/DAY
     Route: 048
     Dates: start: 19980101

REACTIONS (2)
  - MYALGIA [None]
  - MYOSITIS [None]
